FAERS Safety Report 19327155 (Version 2)
Quarter: 2021Q2

REPORT INFORMATION
  Report Type: Spontaneous
  Country: AU (occurrence: AU)
  Receive Date: 20210528
  Receipt Date: 20210623
  Transmission Date: 20210717
  Serious: Yes (Other)
  Sender: FDA-Public Use
  Company Number: AU-INDIVIOR US-INDV-129794-2021

PATIENT

DRUGS (2)
  1. TRAMADOL. [Suspect]
     Active Substance: TRAMADOL
     Indication: PAIN
     Dosage: 50 MILLIGRAM
     Route: 042
  2. BUPRENORPHINE 0.4 MG [Suspect]
     Active Substance: BUPRENORPHINE
     Indication: PAIN
     Dosage: 0.4 MILLIGRAM (OVER 3 HOURS)
     Route: 060

REACTIONS (3)
  - Dizziness [Unknown]
  - Cardiac arrest [Recovered/Resolved]
  - Nausea [Unknown]
